FAERS Safety Report 24452242 (Version 2)
Quarter: 2024Q4

REPORT INFORMATION
  Report Type: Spontaneous
  Country: US (occurrence: US)
  Receive Date: 20241017
  Receipt Date: 20241029
  Transmission Date: 20250114
  Serious: No
  Sender: FRESENIUS KABI
  Company Number: US-FreseniusKabi-FK202415174

PATIENT
  Age: 62 Year
  Weight: 96.62 kg

DRUGS (1)
  1. PACLITAXEL [Suspect]
     Active Substance: PACLITAXEL
     Indication: Ovarian cancer
     Dosage: FORM OF ADMINISTRATION: INJECTION?TAXOL C3D1?THIS WAS THE FINAL DOSE (PATIENT REQUESTED DUE TO REPEA
     Dates: start: 20240919

REACTIONS (3)
  - Dyspnoea [Recovering/Resolving]
  - Hot flush [Recovering/Resolving]
  - Hypersensitivity [Unknown]

NARRATIVE: CASE EVENT DATE: 20240919
